FAERS Safety Report 14027734 (Version 3)
Quarter: 2018Q1

REPORT INFORMATION
  Report Type: Report from Study
  Country: US (occurrence: US)
  Receive Date: 20170929
  Receipt Date: 20180208
  Transmission Date: 20180508
  Serious: Yes (Life-Threatening, Hospitalization, Other)
  Sender: FDA-Public Use
  Company Number: US-MYLANLABS-2017M1061542

PATIENT
  Age: 16 Year
  Sex: Male
  Weight: 51.3 kg

DRUGS (28)
  1. INVESTIGATIONAL DRUG [Suspect]
     Active Substance: INVESTIGATIONAL PRODUCT
     Dosage: UNK
  2. METHOTREXATE. [Suspect]
     Active Substance: METHOTREXATE
     Dosage: 15 MG, ONCE
     Route: 037
     Dates: start: 20170711, end: 20170711
  3. FOLINIC ACID [Suspect]
     Active Substance: LEUCOVORIN
     Indication: ACUTE LYMPHOCYTIC LEUKAEMIA
     Dosage: 24 MG, UNK
     Route: 042
     Dates: start: 20170831
  4. INVESTIGATIONAL DRUG [Suspect]
     Active Substance: INVESTIGATIONAL PRODUCT
     Indication: B-CELL TYPE ACUTE LEUKAEMIA
     Dosage: 85 MG, BID
     Route: 048
     Dates: start: 20170619, end: 20170704
  5. CYCLOPHOSPHAMIDE. [Suspect]
     Active Substance: CYCLOPHOSPHAMIDE
     Dosage: 1700 MG, ONCE
     Route: 042
     Dates: start: 20170624, end: 20170624
  6. CYTARABINE. [Suspect]
     Active Substance: CYTARABINE
     Indication: B-CELL TYPE ACUTE LEUKAEMIA
     Dosage: 130 MG, QD
     Route: 058
     Dates: start: 20170619, end: 20170622
  7. VINCRISTINE [Suspect]
     Active Substance: VINCRISTINE
     Dosage: UNK, ONCE
     Route: 042
     Dates: start: 20170710, end: 20170710
  8. VINCRISTINE [Suspect]
     Active Substance: VINCRISTINE
     Dosage: UNK, ONCE
     Dates: start: 20170814, end: 20170814
  9. METHOTREXATE. [Suspect]
     Active Substance: METHOTREXATE
     Indication: B-CELL TYPE ACUTE LEUKAEMIA
     Dosage: 15 MG, ONCE
     Route: 037
     Dates: start: 20170620, end: 20170620
  10. INVESTIGATIONAL DRUG [Suspect]
     Active Substance: INVESTIGATIONAL PRODUCT
     Dosage: 80 MG, BID
     Route: 048
     Dates: start: 20170829, end: 20170906
  11. CYCLOPHOSPHAMIDE. [Suspect]
     Active Substance: CYCLOPHOSPHAMIDE
     Indication: B-CELL TYPE ACUTE LEUKAEMIA
     Dosage: 1740 MG, ONCE
     Route: 042
     Dates: start: 20170619, end: 20170619
  12. VINCRISTINE [Suspect]
     Active Substance: VINCRISTINE
     Indication: B-CELL TYPE ACUTE LEUKAEMIA
     Dosage: UNK, ONCE
     Route: 042
     Dates: start: 20170703, end: 20170703
  13. VINCRISTINE [Suspect]
     Active Substance: VINCRISTINE
     Dosage: UNK, ONCE
     Route: 042
     Dates: start: 20170807, end: 20170807
  14. METHOTREXATE. [Suspect]
     Active Substance: METHOTREXATE
     Dosage: 15 MG, ONCE
     Route: 037
     Dates: start: 20170627, end: 20170627
  15. METHOTREXATE. [Suspect]
     Active Substance: METHOTREXATE
     Dosage: 8150 MG, ONCE
     Route: 042
     Dates: start: 20170829
  16. CYTARABINE. [Suspect]
     Active Substance: CYTARABINE
     Dosage: 130 MG, QD
     Route: 058
     Dates: start: 20170724, end: 20170727
  17. CYTARABINE. [Suspect]
     Active Substance: CYTARABINE
     Dosage: 130 MG, QD
     Route: 058
     Dates: start: 20170731, end: 20170803
  18. METHOTREXATE. [Suspect]
     Active Substance: METHOTREXATE
     Dosage: 15 MG, ONCE
     Route: 037
     Dates: start: 20170705, end: 20170705
  19. MERCAPTOPURINE. [Suspect]
     Active Substance: MERCAPTOPURINE
     Dosage: UNK
     Dates: start: 20170829
  20. CYTARABINE. [Suspect]
     Active Substance: CYTARABINE
     Dosage: 130 MG, QD
     Route: 058
     Dates: start: 20170626, end: 20170629
  21. PEGASPARGASE [Suspect]
     Active Substance: PEGASPARGASE
     Indication: B-CELL TYPE ACUTE LEUKAEMIA
     Dosage: 4350 IU, ONCE
     Route: 042
     Dates: start: 20170703, end: 20170703
  22. INVESTIGATIONAL DRUG [Suspect]
     Active Substance: INVESTIGATIONAL PRODUCT
     Dosage: 85 MG, BID
     Route: 048
     Dates: start: 20170724, end: 20170806
  23. VINCRISTINE [Suspect]
     Active Substance: VINCRISTINE
     Dosage: 2 MG, ONCE
     Route: 042
     Dates: start: 20170829
  24. PEGASPARGASE [Suspect]
     Active Substance: PEGASPARGASE
     Dosage: 4200 IU, ONCE
     Route: 042
     Dates: start: 20170814, end: 20170814
  25. DAUNORUBICIN HYDROCHLORIDE. [Suspect]
     Active Substance: DAUNORUBICIN HYDROCHLORIDE
     Indication: B-CELL TYPE ACUTE LEUKAEMIA
     Dosage: UNK
  26. MERCAPTOPURINE. [Suspect]
     Active Substance: MERCAPTOPURINE
     Dosage: 700 MG, QW
     Route: 048
     Dates: start: 20170724, end: 20170806
  27. PREDNISONE. [Suspect]
     Active Substance: PREDNISONE
     Indication: B-CELL TYPE ACUTE LEUKAEMIA
     Dosage: UNK
     Route: 048
  28. MERCAPTOPURINE. [Suspect]
     Active Substance: MERCAPTOPURINE
     Indication: B-CELL TYPE ACUTE LEUKAEMIA
     Dosage: 725 MG, QW
     Route: 048
     Dates: start: 20170619, end: 20170702

REACTIONS (4)
  - Neutropenia [Recovered/Resolved]
  - Decreased appetite [Recovered/Resolved]
  - Vascular access complication [Recovered/Resolved]
  - Pyrexia [Recovered/Resolved]

NARRATIVE: CASE EVENT DATE: 20170823
